FAERS Safety Report 12403527 (Version 2)
Quarter: 2016Q4

REPORT INFORMATION
  Report Type: Report from Study
  Country: NO (occurrence: NO)
  Receive Date: 20160525
  Receipt Date: 20161017
  Transmission Date: 20170207
  Serious: Yes (Hospitalization, Other)
  Sender: FDA-Public Use
  Company Number: NO-SHIRE-NO201606246

PATIENT
  Age: 2 Year
  Sex: Male

DRUGS (1)
  1. IDURSULFASE [Suspect]
     Active Substance: IDURSULFASE
     Indication: MUCOPOLYSACCHARIDOSIS II
     Dosage: 0.5 MG/KG, 1X/WEEK
     Route: 041
     Dates: start: 20140612

REACTIONS (4)
  - Cardiovascular disorder [Recovered/Resolved]
  - Infusion related reaction [Recovered/Resolved]
  - Skin discolouration [Recovered/Resolved]
  - Moaning [Recovered/Resolved]

NARRATIVE: CASE EVENT DATE: 20141010
